FAERS Safety Report 9218377 (Version 1)
Quarter: 2013Q2

REPORT INFORMATION
  Report Type: Spontaneous
  Country: US (occurrence: US)
  Receive Date: 20130409
  Receipt Date: 20130409
  Transmission Date: 20140414
  Serious: No
  Sender: FDA-Public Use
  Company Number: US-BIOGENIDEC-2013BI031384

PATIENT
  Age: 44 Year
  Sex: Female

DRUGS (5)
  1. AVONEX [Suspect]
     Indication: MULTIPLE SCLEROSIS
     Route: 030
     Dates: start: 20071113
  2. ZYRTEC [Concomitant]
     Indication: ALLERGIC SINUSITIS
  3. BENADRYL [Concomitant]
     Indication: ALLERGIC SINUSITIS
  4. CLARITIN [Concomitant]
     Indication: ALLERGIC SINUSITIS
  5. MEDICATION (NOS) [Concomitant]
     Indication: ALLERGIC SINUSITIS

REACTIONS (6)
  - Amnesia [Not Recovered/Not Resolved]
  - Gastroenteritis viral [Recovered/Resolved]
  - Upper respiratory tract infection [Not Recovered/Not Resolved]
  - Gastroenteritis norovirus [Not Recovered/Not Resolved]
  - Nausea [Recovered/Resolved]
  - Mood altered [Not Recovered/Not Resolved]
